FAERS Safety Report 16204234 (Version 3)
Quarter: 2019Q2

REPORT INFORMATION
  Report Type: Spontaneous
  Country: US (occurrence: US)
  Receive Date: 20190416
  Receipt Date: 20190531
  Transmission Date: 20190711
  Serious: Yes (Other)
  Sender: FDA-Public Use
  Company Number: US-JNJFOC-20190411719

PATIENT
  Sex: Female
  Weight: 46.72 kg

DRUGS (6)
  1. CIMZIA [Suspect]
     Active Substance: CERTOLIZUMAB PEGOL
     Indication: PSORIASIS
     Route: 065
     Dates: start: 2019
  2. VITAMIN D [Concomitant]
     Active Substance: VITAMIN D NOS
     Indication: NUTRITIONAL SUPPLEMENTATION
     Route: 065
  3. STELARA [Suspect]
     Active Substance: USTEKINUMAB
     Indication: CROHN^S DISEASE
     Route: 058
     Dates: start: 2019
  4. VITAMIN B12 [Concomitant]
     Active Substance: CYANOCOBALAMIN
     Indication: VITAMIN B12 DEFICIENCY
     Route: 065
  5. CALCIUM [Concomitant]
     Active Substance: CALCIUM
     Indication: NUTRITIONAL SUPPLEMENTATION
     Route: 065
  6. STELARA [Suspect]
     Active Substance: USTEKINUMAB
     Indication: CROHN^S DISEASE
     Route: 058
     Dates: start: 201711

REACTIONS (5)
  - Therapeutic response decreased [Not Recovered/Not Resolved]
  - Psoriasis [Unknown]
  - Pneumonitis [Unknown]
  - Asthma [Recovered/Resolved]
  - Opportunistic infection [Unknown]

NARRATIVE: CASE EVENT DATE: 2019
